FAERS Safety Report 4345746-9 (Version None)
Quarter: 2004Q2

REPORT INFORMATION
  Report Type: 
  Country: None (occurrence: None)
  Receive Date: 20040421
  Receipt Date: 20040409
  Transmission Date: 20050107
  Serious: Yes (Hospitalization)
  Sender: FDA-Public Use
  Company Number: 205639

PATIENT
  Age: 55 Year
  Sex: Female

DRUGS (5)
  1. HERCEPTIN [Suspect]
     Indication: BREAST CANCER
     Dosage: SEE IMAGE
     Route: 042
     Dates: start: 20040316, end: 20040316
  2. HERCEPTIN [Suspect]
     Indication: BREAST CANCER
     Dosage: SEE IMAGE
     Route: 042
     Dates: start: 20040323, end: 20040323
  3. DOCETAXEL (DOCETAXEL) [Suspect]
     Indication: BREAST CANCER
     Dosage: 195 MG, INTRAVENOUS
     Route: 042
  4. PROMETHEZINE HCL [Concomitant]
  5. MENOFLUSH (VITAINS NOS, ETHINYL ESTRADIOL) [Concomitant]

REACTIONS (5)
  - ABDOMINAL PAIN [None]
  - BODY TEMPERATURE INCREASED [None]
  - MUCOSAL INFLAMMATION [None]
  - NEUTROPENIC INFECTION [None]
  - RASH [None]
